FAERS Safety Report 9090720 (Version 1)
Quarter: 2013Q1

REPORT INFORMATION
  Report Type: Spontaneous
  Country: US (occurrence: US)
  Receive Date: 20130201
  Receipt Date: 20130201
  Transmission Date: 20140127
  Serious: Yes (Other)
  Sender: FDA-Public Use
  Company Number: US-ABBOTT-13P-163-1041171-00

PATIENT
  Sex: 0

DRUGS (1)
  1. MERIDIA [Suspect]
     Indication: PRODUCT USED FOR UNKNOWN INDICATION
     Dates: start: 20050502, end: 20070918

REACTIONS (1)
  - Cerebrovascular accident [Unknown]
